FAERS Safety Report 8014462-4 (Version None)
Quarter: 2011Q4

REPORT INFORMATION
  Report Type: 
  Country: None (occurrence: None)
  Receive Date: 20111229
  Receipt Date: 20111226
  Transmission Date: 20120403
  Serious: Yes (Other)
  Sender: FDA-Public Use
  Company Number: PHHY2011BR112570

PATIENT
  Sex: Female

DRUGS (2)
  1. GALVUS MET [Suspect]
     Dosage: 500/50 MG
  2. DIOVAN HCT [Suspect]
     Dosage: 320/12.5MG

REACTIONS (1)
  - CEREBROVASCULAR ACCIDENT [None]
